FAERS Safety Report 19500624 (Version 1)
Quarter: 2021Q3

REPORT INFORMATION
  Report Type: Spontaneous
  Country: MX (occurrence: MX)
  Receive Date: 20210706
  Receipt Date: 20210706
  Transmission Date: 20211014
  Serious: Yes (Other)
  Sender: FDA-Public Use
  Company Number: MX-LUNDBECK-DKLU3035083

PATIENT
  Age: 38 Year
  Sex: Female
  Weight: 63 kg

DRUGS (1)
  1. FRISIUM [Suspect]
     Active Substance: CLOBAZAM
     Indication: EPILEPSY
     Route: 048
     Dates: start: 1988

REACTIONS (4)
  - Epilepsy [Unknown]
  - Mood altered [Unknown]
  - Product dose omission issue [Unknown]
  - Somnolence [Unknown]

NARRATIVE: CASE EVENT DATE: 20210620
